FAERS Safety Report 8989206 (Version 2)
Quarter: 2013Q1

REPORT INFORMATION
  Report Type: Spontaneous
  Country: US (occurrence: US)
  Receive Date: 20121227
  Receipt Date: 20130130
  Transmission Date: 20140127
  Serious: No
  Sender: FDA-Public Use
  Company Number: US-ASTRAZENECA-2012SE89669

PATIENT
  Age: 40 Year
  Sex: Male

DRUGS (10)
  1. SEROQUEL [Suspect]
     Indication: APPETITE DISORDER
     Route: 048
  2. SEROQUEL [Suspect]
     Indication: APPETITE DISORDER
     Route: 048
  3. SEROQUEL [Suspect]
     Indication: APPETITE DISORDER
     Route: 048
  4. SEROQUEL [Suspect]
     Indication: APPETITE DISORDER
     Route: 048
     Dates: start: 200805
  5. SEROQUEL [Suspect]
     Indication: APPETITE DISORDER
     Route: 048
  6. SEROQUEL [Suspect]
     Indication: APPETITE DISORDER
     Route: 048
  7. SEROQUEL [Suspect]
     Indication: APPETITE DISORDER
     Dosage: 1/2 TABLET IN PM
     Route: 048
  8. CLONAZEPAM [Concomitant]
     Indication: ANXIETY
  9. CHLORZOXAZONE [Concomitant]
     Indication: MUSCLE RELAXANT THERAPY
  10. PAIN MEDS [Concomitant]
     Indication: BACK INJURY

REACTIONS (16)
  - Anxiety [Unknown]
  - Thinking abnormal [Unknown]
  - Adverse event [Unknown]
  - Adverse drug reaction [Unknown]
  - Back injury [Unknown]
  - Intervertebral disc degeneration [Unknown]
  - Road traffic accident [Unknown]
  - Paranoia [Unknown]
  - Anger [Unknown]
  - Depression [Unknown]
  - Nephrolithiasis [Unknown]
  - Physical assault [Unknown]
  - Weight increased [Unknown]
  - Off label use [Unknown]
  - Intentional drug misuse [Unknown]
  - Drug dose omission [Unknown]
